FAERS Safety Report 7720622-X (Version None)
Quarter: 2011Q3

REPORT INFORMATION
  Report Type: 
  Country: None (occurrence: None)
  Receive Date: 20110831
  Receipt Date: 20110817
  Transmission Date: 20111222
  Serious: Yes (Other)
  Sender: FDA-Public Use
  Company Number: PHHY2011AR74411

PATIENT
  Sex: Female

DRUGS (2)
  1. DIURETICS [Concomitant]
  2. DIOVAN [Suspect]
     Indication: BLOOD PRESSURE ABNORMAL
     Dosage: 1 DF, 80 MG DAILY

REACTIONS (1)
  - BRONCHITIS [None]
